FAERS Safety Report 9135608 (Version 3)
Quarter: 2013Q1

REPORT INFORMATION
  Report Type: Spontaneous
  Country: GB (occurrence: None)
  Receive Date: 20130211
  Receipt Date: 20130220
  Transmission Date: 20140127
  Serious: Yes (Death)
  Sender: FDA-Public Use
  Company Number: 2013SUN00068

PATIENT
  Age: 63 Year
  Sex: Male

DRUGS (1)
  1. BACLOFEN [Suspect]
     Indication: PRODUCT USED FOR UNKNOWN INDICATION
     Route: 037

REACTIONS (1)
  - Device occlusion [None]
